FAERS Safety Report 7211226-6 (Version None)
Quarter: 2011Q1

REPORT INFORMATION
  Report Type: 
  Country: None (occurrence: None)
  Receive Date: 20110105
  Receipt Date: 20101229
  Transmission Date: 20110831
  Serious: Yes (Other)
  Sender: FDA-Public Use
  Company Number: CA-JNJFOC-20110100413

PATIENT
  Sex: Female

DRUGS (7)
  1. IMURAN [Suspect]
  2. IMURAN [Suspect]
  3. REMICADE [Suspect]
     Route: 042
  4. REMICADE [Suspect]
     Route: 042
  5. REMICADE [Suspect]
     Route: 042
  6. IMURAN [Suspect]
     Indication: PRODUCT USED FOR UNKNOWN INDICATION
  7. REMICADE [Suspect]
     Indication: CROHN'S DISEASE
     Route: 042

REACTIONS (8)
  - ARTHRALGIA [None]
  - OEDEMA PERIPHERAL [None]
  - JOINT STIFFNESS [None]
  - JOINT INJURY [None]
  - MUSCULOSKELETAL STIFFNESS [None]
  - FALL [None]
  - PARAESTHESIA [None]
  - LIMB INJURY [None]
